FAERS Safety Report 24944838 (Version 1)
Quarter: 2025Q1

REPORT INFORMATION
  Report Type: Spontaneous
  Country: BE (occurrence: BE)
  Receive Date: 20250208
  Receipt Date: 20250208
  Transmission Date: 20250409
  Serious: Yes (Other)
  Sender: ABBVIE
  Company Number: BE-ABBVIE-6122321

PATIENT

DRUGS (5)
  1. RINVOQ [Suspect]
     Active Substance: UPADACITINIB
     Indication: Crohn^s disease
     Route: 048
     Dates: start: 20200331, end: 20210420
  2. METHOTREXATE [Suspect]
     Active Substance: METHOTREXATE
     Indication: Product used for unknown indication
     Route: 065
     Dates: start: 2020
  3. INFLIXIMAB [Suspect]
     Active Substance: INFLIXIMAB
     Indication: Product used for unknown indication
     Route: 065
     Dates: start: 2020
  4. VEDOLIZUMAB [Suspect]
     Active Substance: VEDOLIZUMAB
     Indication: Product used for unknown indication
     Route: 065
     Dates: start: 202204, end: 202209
  5. TOFACITINIB [Suspect]
     Active Substance: TOFACITINIB
     Indication: Product used for unknown indication
     Route: 065
     Dates: start: 202210

REACTIONS (11)
  - Anal abscess [Unknown]
  - Therapeutic product effect decreased [Unknown]
  - Drug ineffective [Unknown]
  - Faecal calprotectin increased [Unknown]
  - C-reactive protein increased [Unknown]
  - Platelet count increased [Unknown]
  - C-reactive protein increased [Unknown]
  - Dyschezia [Recovering/Resolving]
  - Subileus [Recovering/Resolving]
  - Frequent bowel movements [Recovering/Resolving]
  - Pelvic venous thrombosis [Unknown]

NARRATIVE: CASE EVENT DATE: 20221201
